FAERS Safety Report 7474630-7 (Version None)
Quarter: 2011Q1

REPORT INFORMATION
  Report Type: 
  Country: None (occurrence: None)
  Receive Date: 20110302
  Receipt Date: 20100830
  Transmission Date: 20110831
  Serious: Yes (Hospitalization)
  Sender: FDA-Public Use
  Company Number: 163-21880-10032116

PATIENT
  Age: 87 Year
  Sex: Male

DRUGS (3)
  1. TRAZODONE (TRAZODONE) [Concomitant]
  2. REVLIMID [Suspect]
     Indication: MULTIPLE MYELOMA
     Dosage: 25 MG, 1 IN 1 D, PO; 7.5 MG, 1 IN 2 D, PO
     Route: 048
     Dates: start: 20100415, end: 20100426
  3. REVLIMID [Suspect]
     Indication: MULTIPLE MYELOMA
     Dosage: 25 MG, 1 IN 1 D, PO; 7.5 MG, 1 IN 2 D, PO
     Route: 048
     Dates: start: 20100215, end: 20100201

REACTIONS (6)
  - JOINT SWELLING [None]
  - FATIGUE [None]
  - PANCYTOPENIA [None]
  - PYREXIA [None]
  - SWELLING [None]
  - ASTHENIA [None]
